FAERS Safety Report 16315120 (Version 2)
Quarter: 2019Q2

REPORT INFORMATION
  Report Type: Spontaneous
  Country: US (occurrence: US)
  Receive Date: 20190515
  Receipt Date: 20190524
  Transmission Date: 20190711
  Serious: No
  Sender: FDA-Public Use
  Company Number: US-009507513-1905USA006037

PATIENT
  Sex: Female

DRUGS (1)
  1. NEXPLANON [Suspect]
     Active Substance: ETONOGESTREL
     Dosage: 1 ROD EVERY 3 YEARS
     Route: 059
     Dates: start: 20190502, end: 20190509

REACTIONS (3)
  - Implant site discharge [Unknown]
  - Implant site pain [Unknown]
  - Device expulsion [Unknown]

NARRATIVE: CASE EVENT DATE: 20190509
